FAERS Safety Report 6811510-1 (Version None)
Quarter: 2010Q2

REPORT INFORMATION
  Report Type: 
  Country: None (occurrence: None)
  Receive Date: 20100625
  Receipt Date: 20100609
  Transmission Date: 20101027
  Serious: Yes (Life-Threatening, Hospitalization)
  Sender: FDA-Public Use
  Company Number: 2010RR-33598

PATIENT
  Sex: Female

DRUGS (7)
  1. FLUOXETINE [Suspect]
     Indication: DEPRESSED MOOD
     Dosage: 20 MG, ORAL
     Route: 048
     Dates: start: 20100321, end: 20100326
  2. ANTIBIOTICS NOS [Suspect]
  3. BENDROFLUAZIDE (BENDROFLUAZIDE) [Concomitant]
  4. CANDESARTAN CILEXETIL [Concomitant]
  5. CO-DYDRAMOL (DIHYDROCODEINE TARTRATE, PARACETAMOL) [Concomitant]
  6. FRUSEMIDE (FRUSEMIDE) [Concomitant]
  7. TRIMETHOPRIM [Concomitant]

REACTIONS (4)
  - DEHYDRATION [None]
  - HEPATIC STEATOSIS [None]
  - MALAISE [None]
  - VOMITING [None]
